FAERS Safety Report 24044764 (Version 2)
Quarter: 2024Q4

REPORT INFORMATION
  Report Type: Spontaneous
  Country: CA (occurrence: CA)
  Receive Date: 20240703
  Receipt Date: 20241211
  Transmission Date: 20250115
  Serious: No
  Sender: AMGEN
  Company Number: CA-AMGEN-CANSP2024127976

PATIENT

DRUGS (1)
  1. ARANESP [Suspect]
     Active Substance: DARBEPOETIN ALFA
     Indication: Product used for unknown indication
     Dosage: UNK
     Route: 065

REACTIONS (2)
  - Reticulocyte count decreased [Unknown]
  - Biopsy bone marrow abnormal [Unknown]
